FAERS Safety Report 6417410-3 (Version None)
Quarter: 2009Q4

REPORT INFORMATION
  Report Type: 
  Country: None (occurrence: None)
  Receive Date: 20091028
  Receipt Date: 20091019
  Transmission Date: 20100525
  Serious: Yes (Hospitalization, Other)
  Sender: FDA-Public Use
  Company Number: US-BAYER-200933378NA

PATIENT
  Age: 18 Year
  Sex: Female
  Weight: 78 kg

DRUGS (1)
  1. MIRENA [Suspect]
     Indication: CONTRACEPTION
     Route: 015
     Dates: start: 20090915, end: 20090916

REACTIONS (4)
  - ABDOMINAL PAIN [None]
  - ABDOMINAL PAIN LOWER [None]
  - KIDNEY INFECTION [None]
  - PYREXIA [None]
